FAERS Safety Report 7921667-7 (Version None)
Quarter: 2011Q4

REPORT INFORMATION
  Report Type: 
  Country: None (occurrence: None)
  Receive Date: 20111117
  Receipt Date: 20111110
  Transmission Date: 20120403
  Serious: Yes (Hospitalization)
  Sender: FDA-Public Use
  Company Number: US-GLAXOSMITHKLINE-A0782972A

PATIENT
  Age: 70 Year
  Sex: Male
  Weight: 77.3 kg

DRUGS (6)
  1. GLUCOTROL [Concomitant]
  2. ZOCOR [Concomitant]
  3. METOPROLOL TARTRATE [Concomitant]
  4. ASPIRIN [Concomitant]
  5. CRESTOR [Concomitant]
  6. AVANDIA [Suspect]
     Indication: DIABETES MELLITUS
     Dosage: 4MG PER DAY
     Route: 048
     Dates: start: 20030830, end: 20051209

REACTIONS (1)
  - MYOCARDIAL INFARCTION [None]
